FAERS Safety Report 8281099-1 (Version None)
Quarter: 2012Q2

REPORT INFORMATION
  Report Type: 
  Country: None (occurrence: None)
  Receive Date: 20120413
  Receipt Date: 20120402
  Transmission Date: 20120825
  Serious: Yes (Hospitalization, Other)
  Sender: FDA-Public Use
  Company Number: US-BRISTOL-MYERS SQUIBB COMPANY-16362758

PATIENT
  Age: 79 Year
  Sex: Female
  Weight: 76 kg

DRUGS (26)
  1. IPILIMUMAB [Suspect]
     Indication: MALIGNANT MELANOMA
     Dosage: 1 DF = 5MCG/ML,40ML VIALS
     Route: 042
     Dates: start: 20111020, end: 20120104
  2. VALSARTAN [Concomitant]
  3. METOPROLOL TARTRATE [Concomitant]
     Route: 048
  4. ZOSYN [Concomitant]
  5. POTASSIUM CHLORIDE [Concomitant]
     Route: 048
  6. DIPHENHYDRAMINE HCL [Concomitant]
  7. SEPTRA [Concomitant]
  8. AZITHROMYCIN [Concomitant]
  9. NEUPOGEN [Suspect]
     Indication: MALIGNANT MELANOMA
     Dosage: D1-D14, 250MCG/ML VIALS
     Route: 058
     Dates: start: 20111020, end: 20120118
  10. CIPROFLOXACIN [Concomitant]
  11. PANTOPRAZOLE [Concomitant]
     Route: 048
  12. INSULIN LISPRO [Concomitant]
  13. LISINOPRIL [Concomitant]
  14. JANUVIA [Concomitant]
     Route: 048
  15. HUMALOG [Concomitant]
  16. VANCOMYCIN [Concomitant]
  17. CEFTRIAXONE [Concomitant]
  18. LASIX [Concomitant]
     Route: 048
  19. FAMOTIDINE [Concomitant]
  20. CLONIDINE [Concomitant]
  21. VERSED [Concomitant]
  22. LEVEMIR [Concomitant]
  23. MESALAMINE [Concomitant]
  24. FENTANYL [Concomitant]
  25. ALBUTEROL [Concomitant]
  26. FERROUS SULFATE TAB [Concomitant]
     Route: 048

REACTIONS (11)
  - ASTHENIA [None]
  - PNEUMONIA [None]
  - MENTAL STATUS CHANGES [None]
  - HYPOKALAEMIA [None]
  - HYPONATRAEMIA [None]
  - HYPOGLYCAEMIA [None]
  - SEPSIS [None]
  - COLITIS [None]
  - DIARRHOEA [None]
  - RENAL FAILURE ACUTE [None]
  - ENDOCRINE DISORDER [None]
